FAERS Safety Report 14542312 (Version 1)
Quarter: 2018Q1

REPORT INFORMATION
  Report Type: Spontaneous
  Country: US (occurrence: US)
  Receive Date: 20180216
  Receipt Date: 20180216
  Transmission Date: 20180509
  Serious: Yes (Other)
  Sender: FDA-Public Use
  Company Number: US-OTSUKA-DJ20120083

PATIENT

DRUGS (1)
  1. ABILIFY [Suspect]
     Active Substance: ARIPIPRAZOLE
     Route: 065
     Dates: start: 2008

REACTIONS (7)
  - Muscle atrophy [Not Recovered/Not Resolved]
  - Drug ineffective [Unknown]
  - Wrong technique in product usage process [Unknown]
  - Depression [Not Recovered/Not Resolved]
  - Weight decreased [Not Recovered/Not Resolved]
  - Disturbance in attention [Not Recovered/Not Resolved]
  - Hyperhidrosis [Not Recovered/Not Resolved]
